FAERS Safety Report 8124287-7 (Version None)
Quarter: 2012Q1

REPORT INFORMATION
  Report Type: 
  Country: None (occurrence: None)
  Receive Date: 20120209
  Receipt Date: 20120206
  Transmission Date: 20120608
  Serious: Yes (Other)
  Sender: FDA-Public Use
  Company Number: US-PFIZER INC-2012032302

PATIENT
  Sex: Male
  Weight: 136.1 kg

DRUGS (9)
  1. XANAX [Concomitant]
     Dosage: UNK
  2. ATENOLOL [Concomitant]
     Dosage: UNK
  3. CRESTOR [Concomitant]
     Indication: BLOOD CHOLESTEROL INCREASED
     Dosage: UNK
  4. PLAVIX [Concomitant]
     Dosage: UNK
  5. PROZAC [Concomitant]
     Dosage: UNK
  6. TESTOSTERONE [Concomitant]
     Dosage: UNK, EVERY 2 WEEKS
  7. OMEPRAZOLE [Concomitant]
     Indication: DYSPEPSIA
     Dosage: 20 MG, UNK
  8. AVINZA [Suspect]
     Indication: BACK PAIN
     Dosage: 60 MG, 1X/DAY
     Route: 048
     Dates: start: 20120101, end: 20120203
  9. AVINZA [Suspect]
     Indication: PAIN IN EXTREMITY
     Dosage: 120 MG, 2X/DAY
     Route: 048
     Dates: start: 20120203

REACTIONS (8)
  - ABASIA [None]
  - DRUG INEFFECTIVE [None]
  - MIGRAINE [None]
  - INCORRECT DOSE ADMINISTERED [None]
  - BACK PAIN [None]
  - NECK PAIN [None]
  - DRUG EFFECT DECREASED [None]
  - PAIN IN EXTREMITY [None]
